FAERS Safety Report 7449125-7 (Version None)
Quarter: 2011Q2

REPORT INFORMATION
  Report Type: 
  Country: None (occurrence: None)
  Receive Date: 20110502
  Receipt Date: 20110328
  Transmission Date: 20111010
  Serious: Yes (Death)
  Sender: FDA-Public Use
  Company Number: US-BAYER-201036334NA

PATIENT

DRUGS (2)
  1. YAZ [Suspect]
     Indication: PREMENSTRUAL SYNDROME
     Route: 064
     Dates: start: 20061201, end: 20070501
  2. YASMIN [Suspect]
     Indication: PREMENSTRUAL SYNDROME
     Route: 064
     Dates: start: 20061201, end: 20070501

REACTIONS (1)
  - UMBILICAL CORD VASCULAR DISORDER [None]
